FAERS Safety Report 13334058 (Version 1)
Quarter: 2017Q1

REPORT INFORMATION
  Report Type: Spontaneous
  Country: US (occurrence: US)
  Receive Date: 20170314
  Receipt Date: 20170314
  Transmission Date: 20170428
  Serious: Yes (Hospitalization)
  Sender: FDA-Public Use
  Company Number: US-HORIZON-PRE-0074-2017

PATIENT
  Age: 59 Year
  Sex: Female
  Weight: 87.4 kg

DRUGS (2)
  1. RAYOS [Suspect]
     Active Substance: PREDNISONE
     Indication: PERICARDITIS
     Dosage: 4 MG DAILY AT 10 PM
  2. LOVENOX [Concomitant]
     Active Substance: ENOXAPARIN SODIUM
     Indication: PULMONARY EMBOLISM

REACTIONS (2)
  - Osteopenia [Unknown]
  - Adrenal suppression [Unknown]
